FAERS Safety Report 8109622-8 (Version None)
Quarter: 2012Q1

REPORT INFORMATION
  Report Type: 
  Country: None (occurrence: None)
  Receive Date: 20120202
  Receipt Date: 20120118
  Transmission Date: 20120608
  Serious: No
  Sender: FDA-Public Use
  Company Number: US-AMGEN-USASP2012003523

PATIENT
  Sex: Male

DRUGS (2)
  1. ENBREL [Suspect]
     Indication: ANKYLOSING SPONDYLITIS
     Dosage: 50 MG, UNK
     Route: 058
     Dates: start: 20040101
  2. TREXALL [Concomitant]
     Dosage: 2 MG, UNK

REACTIONS (3)
  - INJECTION SITE PAIN [None]
  - THERAPEUTIC RESPONSE DECREASED [None]
  - PAIN [None]
